FAERS Safety Report 5238285-4 (Version None)
Quarter: 2007Q1

REPORT INFORMATION
  Report Type: 
  Country: None (occurrence: None)
  Receive Date: 20070209
  Receipt Date: 20070209
  Transmission Date: 20070707
  Serious: Yes (Hospitalization)
  Sender: FDA-Public Use
  Company Number: None

PATIENT
  Sex: Female
  Weight: 60.7 kg

DRUGS (10)
  1. GEMZAR [Suspect]
     Indication: ADENOID CYSTIC CARCINOMA
     Dosage: 1620 MG DAY 1 IV
     Route: 042
     Dates: start: 20060814, end: 20060918
  2. GEMZAR [Suspect]
     Indication: METASTATIC NEOPLASM
     Dosage: 1620 MG DAY 1 IV
     Route: 042
     Dates: start: 20060814, end: 20060918
  3. PS-341 -BORTEZOMIB- [Suspect]
     Indication: ADENOID CYSTIC CARCINOMA
     Dosage: 2 MG DAY 1 AND DAY 4 IV BOLUS
     Route: 040
     Dates: start: 20060814, end: 20060921
  4. PS-341 -BORTEZOMIB- [Suspect]
     Indication: METASTATIC NEOPLASM
     Dosage: 2 MG DAY 1 AND DAY 4 IV BOLUS
     Route: 040
     Dates: start: 20060814, end: 20060921
  5. PS-341 -BORTEZOMIB- [Suspect]
  6. ELAVIL [Concomitant]
  7. VICODIN [Concomitant]
  8. POTASSIUM CHLORIDE [Concomitant]
  9. LASIX [Concomitant]
  10. FIORINAL [Concomitant]

REACTIONS (4)
  - FALL [None]
  - MALIGNANT NEOPLASM PROGRESSION [None]
  - NEUROPATHY PERIPHERAL [None]
  - ORTHOSTATIC HYPOTENSION [None]
